FAERS Safety Report 8907883 (Version 1)
Quarter: 2012Q4

REPORT INFORMATION
  Report Type: 
  Country: DE (occurrence: DE)
  Receive Date: 20121114
  Receipt Date: 20121114
  Transmission Date: 20130627
  Serious: Yes (Hospitalization)
  Sender: FDA-Public Use
  Company Number: DE-AMGEN-DEUSP2012071613

PATIENT
  Age: 64 Year
  Sex: Female

DRUGS (3)
  1. ENBREL [Suspect]
     Indication: RHEUMATOID ARTHRITIS
     Dosage: 50 mg, qwk
     Dates: start: 20110915, end: 20120301
  2. CELEBREX [Concomitant]
     Dosage: UNK
  3. CORTISONE [Concomitant]
     Dosage: UNK

REACTIONS (1)
  - Haemangioma [Recovered/Resolved]
